FAERS Safety Report 8612849-X (Version None)
Quarter: 2012Q3

REPORT INFORMATION
  Report Type: 
  Country: None (occurrence: None)
  Receive Date: 20120822
  Receipt Date: 20120127
  Transmission Date: 20120928
  Serious: No
  Sender: FDA-Public Use
  Company Number: US-ASTRAZENECA-2011SE29465

PATIENT
  Age: 55 Year
  Sex: Female

DRUGS (5)
  1. SYMBICORT [Suspect]
     Route: 055
  2. OMEPRAZOLE [Suspect]
     Route: 048
  3. PROTONIX [Concomitant]
  4. NEXIUM [Suspect]
     Route: 048
  5. PRILOSEC [Concomitant]

REACTIONS (6)
  - GASTROINTESTINAL DISORDER [None]
  - ERUCTATION [None]
  - DRUG DOSE OMISSION [None]
  - DYSGEUSIA [None]
  - DYSPEPSIA [None]
  - DRUG INEFFECTIVE [None]
